FAERS Safety Report 7739563-7 (Version None)
Quarter: 2011Q3

REPORT INFORMATION
  Report Type: 
  Country: None (occurrence: None)
  Receive Date: 20110909
  Receipt Date: 20110907
  Transmission Date: 20111222
  Serious: Yes (Death, Other)
  Sender: FDA-Public Use
  Company Number: JP-PFIZER INC-2011209053

PATIENT
  Age: 67 Year
  Sex: Female
  Weight: 37.4 kg

DRUGS (9)
  1. FAMOTIDINE [Concomitant]
     Indication: GASTROINTESTINAL DISORDER
     Dosage: 10 MG, 1X/DAY
     Route: 048
  2. LEVOTHYROXINE SODIUM [Concomitant]
     Indication: HYPOTHYROIDISM
     Dosage: 50 UG, 1X/DAY
     Route: 048
  3. LENDORMIN [Concomitant]
     Indication: INSOMNIA
     Dosage: 0.25 MG, 1X/DAY
     Route: 048
  4. EPADEL [Concomitant]
     Indication: POOR PERIPHERAL CIRCULATION
     Dosage: 1800 MG/DAY
     Route: 048
  5. RENAGEL [Concomitant]
     Dosage: UNK
     Route: 048
     Dates: start: 20110728
  6. SEVELAMER HYDROCHLORIDE [Concomitant]
     Dosage: 800 MG, 2X/DAY
     Route: 048
     Dates: end: 20110727
  7. CALCIUM CARBONATE [Concomitant]
     Dosage: 500 MG, 3X/DAY
     Route: 048
  8. METHYCOBAL [Concomitant]
     Indication: NEUROPATHY PERIPHERAL
     Dosage: 500 UG, 3X/DAY
     Route: 048
  9. LYRICA [Suspect]
     Indication: POST HERPETIC NEURALGIA
     Dosage: 25 MG, 1X/DAY
     Route: 048
     Dates: start: 20110804

REACTIONS (3)
  - MYOCARDIAL ISCHAEMIA [None]
  - LOSS OF CONSCIOUSNESS [None]
  - FALL [None]
